FAERS Safety Report 18275961 (Version 2)
Quarter: 2020Q3

REPORT INFORMATION
  Report Type: Spontaneous
  Country: US (occurrence: US)
  Receive Date: 20200917
  Receipt Date: 20200928
  Transmission Date: 20201103
  Serious: No
  Sender: FDA-Public Use
  Company Number: US-ELI_LILLY_AND_COMPANY-US202009007311

PATIENT
  Sex: Female

DRUGS (1)
  1. FORTEO [Suspect]
     Active Substance: TERIPARATIDE
     Indication: PRODUCT USED FOR UNKNOWN INDICATION
     Dosage: UNK UNK, UNKNOWN
     Route: 065
     Dates: start: 201906

REACTIONS (14)
  - Gastritis [Unknown]
  - Rheumatoid arthritis [Unknown]
  - Fibromyalgia [Unknown]
  - Autoimmune disorder [Unknown]
  - Stress [Unknown]
  - Pain [Unknown]
  - Expired product administered [Unknown]
  - Feeling abnormal [Unknown]
  - Asthenia [Unknown]
  - Osteoarthritis [Unknown]
  - Nervousness [Unknown]
  - Medical device pain [Unknown]
  - Irritable bowel syndrome [Unknown]
  - Gastrointestinal disorder [Unknown]

NARRATIVE: CASE EVENT DATE: 201911
